FAERS Safety Report 24341531 (Version 2)
Quarter: 2025Q1

REPORT INFORMATION
  Report Type: Spontaneous
  Country: US (occurrence: US)
  Receive Date: 20240920
  Receipt Date: 20250320
  Transmission Date: 20250409
  Serious: No
  Sender: AMGEN
  Company Number: US-AMGEN-USASP2024185076

PATIENT
  Sex: Female

DRUGS (6)
  1. OTEZLA [Suspect]
     Active Substance: APREMILAST
     Indication: Psoriatic arthropathy
     Dosage: 30 MILLIGRAM, BID
     Route: 048
     Dates: start: 20200520
  2. ADVAIR HFA [Concomitant]
     Active Substance: FLUTICASONE PROPIONATE\SALMETEROL XINAFOATE
  3. CETIRIZINE [Concomitant]
     Active Substance: CETIRIZINE HYDROCHLORIDE
  4. NAPROXEN [Concomitant]
     Active Substance: NAPROXEN
  5. TAMOXIFEN [Concomitant]
     Active Substance: TAMOXIFEN
  6. XELJANZ [Concomitant]
     Active Substance: TOFACITINIB CITRATE

REACTIONS (2)
  - Therapy non-responder [Unknown]
  - Pain [Unknown]
